FAERS Safety Report 23500755 (Version 1)
Quarter: 2024Q1

REPORT INFORMATION
  Report Type: Spontaneous
  Country: IT (occurrence: IT)
  Receive Date: 20240208
  Receipt Date: 20240208
  Transmission Date: 20240409
  Serious: Yes (Other)
  Sender: FDA-Public Use
  Company Number: IT-002147023-NVSC2024IT021665

PATIENT
  Age: 18 Year
  Sex: Female

DRUGS (3)
  1. INFLIXIMAB [Suspect]
     Active Substance: INFLIXIMAB
     Indication: Uveitis
     Dosage: 10 MG/KG
     Route: 065
  2. ADALIMUMAB [Suspect]
     Active Substance: ADALIMUMAB\ISOPROPYL ALCOHOL
     Indication: Uveitis
     Dosage: 30 - 40 MG EVERY TWO WEEKS
     Route: 065
  3. CYCLOSPORINE [Suspect]
     Active Substance: CYCLOSPORINE
     Indication: Uveitis
     Dosage: 2.5 - 5 MG/KG/DAY
     Route: 065

REACTIONS (4)
  - Lens disorder [Recovered/Resolved]
  - Iris adhesions [Recovered/Resolved]
  - Cataract [Recovered/Resolved]
  - Off label use [Unknown]
